FAERS Safety Report 16949051 (Version 1)
Quarter: 2019Q4

REPORT INFORMATION
  Report Type: Spontaneous
  Country: US (occurrence: US)
  Receive Date: 20191023
  Receipt Date: 20191023
  Transmission Date: 20200122
  Serious: Yes (Hospitalization)
  Sender: FDA-Public Use
  Company Number: US-ROCHE-2439146

PATIENT
  Sex: Male
  Weight: 11.35 kg

DRUGS (2)
  1. PULMOZYME [Suspect]
     Active Substance: DORNASE ALFA
     Indication: SPINAL MUSCULAR ATROPHY
     Dosage: RESPIRATORY (INHALATION)
     Route: 065
     Dates: start: 201801
  2. PULMOZYME [Suspect]
     Active Substance: DORNASE ALFA
     Indication: RESPIRATORY TRACT INFECTION

REACTIONS (3)
  - Off label use [Unknown]
  - Intentional product use issue [Unknown]
  - Respiratory tract infection [Not Recovered/Not Resolved]
